FAERS Safety Report 9283516 (Version 1)
Quarter: 2013Q2

REPORT INFORMATION
  Report Type: Spontaneous
  Country: US (occurrence: US)
  Receive Date: 20130510
  Receipt Date: 20130510
  Transmission Date: 20140414
  Serious: No
  Sender: FDA-Public Use
  Company Number: US-GLAXOSMITHKLINE-A1013907A

PATIENT
  Age: 71 Year
  Sex: Female
  Weight: 69.1 kg

DRUGS (5)
  1. TYKERB [Suspect]
     Indication: BREAST CANCER
     Dosage: 1250MG PER DAY
     Route: 048
  2. UNSPECIFIED MEDICATION [Concomitant]
  3. LOSARTAN [Concomitant]
  4. NIFEDIPINE [Concomitant]
  5. DEXAMETHASONE [Concomitant]

REACTIONS (1)
  - Drug ineffective [Unknown]
